FAERS Safety Report 11134472 (Version 2)
Quarter: 2015Q4

REPORT INFORMATION
  Report Type: Report from Study
  Country: US (occurrence: US)
  Receive Date: 20150525
  Receipt Date: 20151202
  Transmission Date: 20160304
  Serious: No
  Sender: FDA-Public Use
  Company Number: US-AMGEN-USASL2015047482

PATIENT
  Age: 72 Year
  Sex: Female

DRUGS (4)
  1. METHOTREXATE [Concomitant]
     Active Substance: METHOTREXATE
     Dosage: 250 MG, QWK
  2. ENBREL [Suspect]
     Active Substance: ETANERCEPT
     Indication: GRANULOMA ANNULARE
     Dosage: 50 MG, QWK
     Route: 065
     Dates: start: 201407, end: 201509
  3. COUMADIN [Concomitant]
     Active Substance: WARFARIN SODIUM
     Dosage: UNK
  4. GABAPENTINE [Concomitant]
     Active Substance: GABAPENTIN
     Dosage: UNK

REACTIONS (3)
  - Therapeutic response unexpected [Not Recovered/Not Resolved]
  - Off label use [Unknown]
  - Macule [Not Recovered/Not Resolved]

NARRATIVE: CASE EVENT DATE: 201407
